FAERS Safety Report 10206614 (Version 3)
Quarter: 2014Q4

REPORT INFORMATION
  Report Type: Spontaneous
  Country: US (occurrence: US)
  Receive Date: 20140530
  Receipt Date: 20141015
  Transmission Date: 20150528
  Serious: Yes (Hospitalization, Other)
  Sender: FDA-Public Use
  Company Number: US-GLAXOSMITHKLINE-A1066336A

PATIENT
  Sex: Female

DRUGS (7)
  1. FLOLAN [Suspect]
     Active Substance: EPOPROSTENOL SODIUM
     Indication: RHEUMATOID ARTHRITIS
     Dosage: 30NG/KG/MIN, CONTINUOUSLY
  2. REMODULIN [Concomitant]
     Active Substance: TREPROSTINIL
  3. OXYGEN. [Concomitant]
     Active Substance: OXYGEN
  4. TRACLEER [Concomitant]
     Active Substance: BOSENTAN\BOSENTAN MONOHYDRATE
  5. ADCIRCA [Concomitant]
     Active Substance: TADALAFIL
  6. FLOLAN [Suspect]
     Active Substance: EPOPROSTENOL SODIUM
     Indication: COR PULMONALE CHRONIC
     Dosage: 12 NG/KG/MIN, CONCENTRATION 15,000 NG/ML, PUMP RATE 62 ML/DAY, VIAL STRENGTH 1.5 MG30 NG/KG/MIN[...]
     Route: 042
     Dates: start: 20140307
  7. COUMADIN [Concomitant]
     Active Substance: WARFARIN SODIUM

REACTIONS (10)
  - Rheumatoid arthritis [Unknown]
  - Pulmonary hypertension [Unknown]
  - Arthralgia [Unknown]
  - Nausea [Unknown]
  - Investigation [Not Recovered/Not Resolved]
  - Headache [Unknown]
  - Diarrhoea [Unknown]
  - Cyanosis [Recovering/Resolving]
  - Swelling [Unknown]
  - Rash [Unknown]
